FAERS Safety Report 6561463-9 (Version None)
Quarter: 2010Q1

REPORT INFORMATION
  Report Type: 
  Country: None (occurrence: None)
  Receive Date: 20100130
  Receipt Date: 20091016
  Transmission Date: 20100710
  Serious: No
  Sender: FDA-Public Use
  Company Number: US-ABBOTT-09P-163-0603138-00

PATIENT
  Sex: Female
  Weight: 69.462 kg

DRUGS (4)
  1. HUMIRA [Suspect]
     Indication: RHEUMATOID ARTHRITIS
     Dates: start: 20080101
  2. HUMIRA [Suspect]
     Dosage: HUMIRA PRE-FILLED SYRINGE
     Dates: start: 20060824, end: 20080101
  3. CELEBREX [Concomitant]
     Indication: RHEUMATOID ARTHRITIS
  4. PANTOPRAZOLE [Concomitant]
     Indication: PROPHYLAXIS AGAINST GASTROINTESTINAL ULCER

REACTIONS (4)
  - CHILLS [None]
  - DIARRHOEA [None]
  - GASTROINTESTINAL INFECTION [None]
  - PYREXIA [None]
